FAERS Safety Report 6087045-3 (Version None)
Quarter: 2009Q1

REPORT INFORMATION
  Report Type: 
  Country: None (occurrence: None)
  Receive Date: 20090217
  Receipt Date: 20080718
  Transmission Date: 20090719
  Serious: Yes (Other)
  Sender: FDA-Public Use
  Company Number: MC200800272

PATIENT
  Age: 34 Year
  Sex: Male
  Weight: 90 kg

DRUGS (2)
  1. ANGIOMAX [Suspect]
     Indication: PERCUTANEOUS CORONARY INTERVENTION
     Dosage: 0.75 MG/KG, BOLUS, INTRAVENOUS; 1.75 MG/KG, HR, 250 MG/50 ML, INTRAVENOUS
     Route: 040
     Dates: start: 20080611, end: 20080611
  2. ANGIOMAX [Suspect]
     Indication: PERCUTANEOUS CORONARY INTERVENTION
     Dosage: 0.75 MG/KG, BOLUS, INTRAVENOUS; 1.75 MG/KG, HR, 250 MG/50 ML, INTRAVENOUS
     Route: 040
     Dates: start: 20080611, end: 20080611

REACTIONS (3)
  - CATHETER THROMBOSIS [None]
  - COAGULATION TIME ABNORMAL [None]
  - DRUG INEFFECTIVE [None]
